FAERS Safety Report 22628929 (Version 1)
Quarter: 2023Q2

REPORT INFORMATION
  Report Type: Spontaneous
  Country: FR (occurrence: FR)
  Receive Date: 20230622
  Receipt Date: 20230622
  Transmission Date: 20230722
  Serious: Yes (Other)
  Sender: FDA-Public Use
  Company Number: None

PATIENT
  Age: 66 Year
  Sex: Male
  Weight: 91 kg

DRUGS (1)
  1. KETOPROFEN [Suspect]
     Active Substance: KETOPROFEN
     Indication: Back pain
     Dosage: 200 MILLIGRAM, QD
     Route: 048
     Dates: start: 20230126, end: 20230127

REACTIONS (3)
  - Angioedema [Recovered/Resolved]
  - Allergy test negative [Recovered/Resolved]
  - Drug intolerance [Recovered/Resolved]

NARRATIVE: CASE EVENT DATE: 20230128
